FAERS Safety Report 22078877 (Version 3)
Quarter: 2023Q1

REPORT INFORMATION
  Report Type: Other
  Country: US (occurrence: None)
  Receive Date: 20230309
  Receipt Date: 20230329
  Transmission Date: 20230418
  Serious: Yes (Hospitalization)
  Sender: FDA-Public Use
  Company Number: US-ROCHE-3051427

PATIENT
  Age: 33 Year
  Sex: Female
  Weight: 51.302 kg

DRUGS (1)
  1. OCREVUS [Suspect]
     Active Substance: OCRELIZUMAB
     Indication: Relapsing multiple sclerosis
     Dosage: INFUSE 600 MG IV EVERY 6 MONTHS?DATE OF SERVICE:- 15/SEP/2022, 28/FEB/2022, 14/MAR/2022
     Route: 042
     Dates: start: 20220228

REACTIONS (29)
  - Conversion disorder [Unknown]
  - Mental disorder [Unknown]
  - Mood altered [Not Recovered/Not Resolved]
  - Memory impairment [Not Recovered/Not Resolved]
  - Anxiety [Unknown]
  - Daydreaming [Not Recovered/Not Resolved]
  - Lip disorder [Unknown]
  - Fatigue [Unknown]
  - Gait disturbance [Unknown]
  - Feeling abnormal [Unknown]
  - Eye irritation [Unknown]
  - COVID-19 [Recovered/Resolved]
  - Dysphemia [Not Recovered/Not Resolved]
  - Fatigue [Recovered/Resolved]
  - Muscle spasms [Not Recovered/Not Resolved]
  - Gait disturbance [Not Recovered/Not Resolved]
  - Fall [Unknown]
  - Cough [Not Recovered/Not Resolved]
  - Dyspnoea [Not Recovered/Not Resolved]
  - Throat irritation [Not Recovered/Not Resolved]
  - Memory impairment [Recovered/Resolved]
  - Dysarthria [Recovered/Resolved]
  - Speech disorder [Recovered/Resolved]
  - Palpitations [Recovered/Resolved]
  - Drooling [Unknown]
  - Acne [Not Recovered/Not Resolved]
  - Dry skin [Unknown]
  - Skin fissures [Unknown]
  - Skin discolouration [Unknown]

NARRATIVE: CASE EVENT DATE: 20220901
